FAERS Safety Report 6618344 (Version 4)
Quarter: 2016Q4

REPORT INFORMATION
  Report Type: Spontaneous
  Country: US (occurrence: US)
  Receive Date: 20080418
  Receipt Date: 20161219
  Transmission Date: 20170207
  Serious: No
  Sender: FDA-Public Use
  Company Number: US-ASTRAZENECA-2007UW02886

PATIENT
  Age: 842 Month
  Sex: Female
  Weight: 78 kg

DRUGS (19)
  1. PRILOSEC [Suspect]
     Active Substance: OMEPRAZOLE MAGNESIUM
     Dosage: 20MG
     Route: 048
     Dates: start: 2006
  2. ZESTRIL [Suspect]
     Active Substance: LISINOPRIL
     Indication: HYPERTENSION
     Route: 048
     Dates: start: 200508
  3. ZESTRIL [Suspect]
     Active Substance: LISINOPRIL
     Indication: HYPERTENSION
     Dosage: 40.0MG UNKNOWN
     Route: 048
     Dates: start: 2006
  4. ZESTRIL [Suspect]
     Active Substance: LISINOPRIL
     Indication: HYPERTENSION
     Dosage: 40.0MG UNKNOWN
     Route: 048
     Dates: start: 200708
  5. HYDROCHLOROTHIAZIDE. [Suspect]
     Active Substance: HYDROCHLOROTHIAZIDE
     Dosage: NON AZ PRODUCT, HALF OF 25MG, DAILY
     Route: 065
  6. NEXIUM [Suspect]
     Active Substance: ESOMEPRAZOLE MAGNESIUM
     Indication: GASTROOESOPHAGEAL REFLUX DISEASE
     Route: 048
  7. ZESTRIL [Suspect]
     Active Substance: LISINOPRIL
     Indication: HYPERTENSION
     Dosage: 10.0MG UNKNOWN
     Route: 048
  8. TOPROL XL [Suspect]
     Active Substance: METOPROLOL SUCCINATE
     Indication: HYPERTENSION
     Dosage: 25.0MG UNKNOWN
     Route: 048
  9. PROCARDIA [Suspect]
     Active Substance: NIFEDIPINE
     Dosage: NON AZ DRUG
     Route: 065
  10. ZESTRIL [Suspect]
     Active Substance: LISINOPRIL
     Indication: HYPERTENSION
     Dosage: 40.0MG UNKNOWN
     Route: 048
     Dates: start: 200708
  11. CLONIDINE. [Concomitant]
     Active Substance: CLONIDINE
  12. ZESTRIL [Suspect]
     Active Substance: LISINOPRIL
     Indication: HYPERTENSION
     Route: 048
     Dates: start: 200508
  13. ZESTRIL [Suspect]
     Active Substance: LISINOPRIL
     Indication: HYPERTENSION
     Dosage: 40.0MG UNKNOWN
     Route: 048
     Dates: start: 2006
  14. NEXIUM [Suspect]
     Active Substance: ESOMEPRAZOLE MAGNESIUM
     Indication: GASTROOESOPHAGEAL REFLUX DISEASE
     Route: 048
     Dates: start: 20070201
  15. ZESTRIL [Suspect]
     Active Substance: LISINOPRIL
     Indication: HYPERTENSION
     Dosage: 10.0MG UNKNOWN
     Route: 048
  16. WATER PILL [Concomitant]
     Active Substance: UNSPECIFIED INGREDIENT
  17. NEXIUM [Suspect]
     Active Substance: ESOMEPRAZOLE MAGNESIUM
     Indication: GASTROOESOPHAGEAL REFLUX DISEASE
     Route: 048
     Dates: start: 1992
  18. PRILOSEC OTC [Suspect]
     Active Substance: OMEPRAZOLE MAGNESIUM
     Dosage: 20MG
     Route: 048
     Dates: start: 201009
  19. TOPROL XL [Suspect]
     Active Substance: METOPROLOL SUCCINATE
     Indication: HYPERTENSION
     Route: 048
     Dates: start: 20070201

REACTIONS (23)
  - Emotional distress [Unknown]
  - Gastrooesophageal reflux disease [Unknown]
  - Cardiac flutter [Recovered/Resolved]
  - Hypertension [Not Recovered/Not Resolved]
  - Wrong drug administered [Unknown]
  - Blood pressure systolic increased [Unknown]
  - Cough [Unknown]
  - Regurgitation [Unknown]
  - Dry throat [Unknown]
  - Drug ineffective [Unknown]
  - Dysphagia [Unknown]
  - Cataract [Unknown]
  - Oropharyngeal pain [Unknown]
  - Upper-airway cough syndrome [Unknown]
  - Vomiting [Unknown]
  - Joint swelling [Unknown]
  - Feeling abnormal [Unknown]
  - Fatigue [Unknown]
  - Depression [Unknown]
  - Flushing [Unknown]
  - Dizziness [Unknown]
  - Circumstance or information capable of leading to medication error [Unknown]
  - Intentional product misuse [Unknown]

NARRATIVE: CASE EVENT DATE: 200708
